FAERS Safety Report 20784575 (Version 2)
Quarter: 2022Q2

REPORT INFORMATION
  Report Type: Spontaneous
  Country: AE (occurrence: AE)
  Receive Date: 20220504
  Receipt Date: 20220511
  Transmission Date: 20220721
  Serious: Yes (Other)
  Sender: FDA-Public Use
  Company Number: AE-BoehringerIngelheim-2022-BI-167812

PATIENT
  Age: 87 Year
  Sex: Female

DRUGS (1)
  1. JARDIANCE [Suspect]
     Active Substance: EMPAGLIFLOZIN
     Indication: Product used for unknown indication
     Dates: start: 202204, end: 20220420

REACTIONS (2)
  - Acute kidney injury [Unknown]
  - Glomerular filtration rate decreased [Unknown]
